FAERS Safety Report 6131356-X (Version None)
Quarter: 2009Q1

REPORT INFORMATION
  Report Type: 
  Country: None (occurrence: None)
  Receive Date: 20090325
  Receipt Date: 20080521
  Transmission Date: 20090719
  Serious: Yes (Life-Threatening)
  Sender: FDA-Public Use
  Company Number: US-BRISTOL-MYERS SQUIBB COMPANY-14134951

PATIENT
  Age: 64 Year
  Sex: Male

DRUGS (6)
  1. ERBITUX [Suspect]
     Indication: LUNG NEOPLASM MALIGNANT
     Dosage: LOADING DOSE = 400MG/M2
     Route: 042
     Dates: start: 20080324, end: 20080324
  2. BENADRYL [Concomitant]
     Indication: PREMEDICATION
     Route: 042
  3. SOLU-MEDROL [Concomitant]
     Indication: PREMEDICATION
  4. ALOXI [Concomitant]
     Route: 040
  5. TAGAMET [Concomitant]
     Route: 040
  6. DEXAMETHASONE TAB [Concomitant]

REACTIONS (1)
  - CARDIO-RESPIRATORY ARREST [None]
